FAERS Safety Report 17801505 (Version 1)
Quarter: 2020Q2

REPORT INFORMATION
  Report Type: Spontaneous
  Country: US (occurrence: US)
  Receive Date: 20200518
  Receipt Date: 20200518
  Transmission Date: 20200714
  Serious: No
  Sender: FDA-Public Use
  Company Number: None

PATIENT
  Age: 49 Year
  Sex: Female

DRUGS (2)
  1. CAPECITABINE 500MG NOVADOZ PHARMACEUTICALS [Suspect]
     Active Substance: CAPECITABINE
     Indication: BREAST NEOPLASM
     Route: 048
     Dates: start: 20200409
  2. CAPECITABINE 500MG NOVADOZ PHARMACEUTICALS [Suspect]
     Active Substance: CAPECITABINE
     Indication: BREAST NEOPLASM
     Route: 048
     Dates: start: 20200409

REACTIONS (2)
  - Dry eye [None]
  - Ocular discomfort [None]

NARRATIVE: CASE EVENT DATE: 202004
